FAERS Safety Report 8972932 (Version 1)
Quarter: 2012Q4

REPORT INFORMATION
  Report Type: 
  Country: US (occurrence: US)
  Receive Date: 20121218
  Receipt Date: 20121218
  Transmission Date: 20130627
  Serious: No
  Sender: FDA-Public Use
  Company Number: US-009507513-1212USA004453

PATIENT
  Sex: Female
  Weight: 125 kg

DRUGS (1)
  1. NUVARING [Suspect]
     Indication: CONTRACEPTION
     Dosage: Continously up to 4 weeks
     Route: 067

REACTIONS (1)
  - Migraine [Unknown]
